FAERS Safety Report 7069353-2 (Version None)
Quarter: 2010Q4

REPORT INFORMATION
  Report Type: 
  Country: None (occurrence: None)
  Receive Date: 20101028
  Receipt Date: 20101013
  Transmission Date: 20110411
  Serious: Yes (Hospitalization)
  Sender: FDA-Public Use
  Company Number: US-AMGEN-STX182526

PATIENT

DRUGS (10)
  1. ENBREL [Suspect]
     Indication: PSORIASIS
     Dosage: 25 MG, 2 TIMES/WK
     Route: 065
     Dates: start: 20050404
  2. PYRIDOXINE HYDROCHLORIDE [Concomitant]
  3. ALLOPURINOL [Concomitant]
     Dosage: 300 MG, UNK
  4. TOPROL-XL [Concomitant]
     Dosage: 60 MG, UNK
  5. CLOPIDOGREL BISULFATE [Concomitant]
     Dosage: 50 MG, UNK
  6. GABAPENTIN [Concomitant]
     Dosage: 300 MG, UNK
  7. HYDROXYZINE [Concomitant]
     Dosage: 25 MG, UNK
  8. METFORMIN [Concomitant]
     Dosage: 1000 MG, UNK
  9. INSULIN [Concomitant]
  10. PIOGLITAZONE HCL [Concomitant]
     Dosage: 45 MG, UNK

REACTIONS (8)
  - ANAEMIA [None]
  - BACK PAIN [None]
  - DIZZINESS [None]
  - FATIGUE [None]
  - HEADACHE [None]
  - NECK PAIN [None]
  - PSORIASIS [None]
  - PULMONARY TUBERCULOSIS [None]
